FAERS Safety Report 24614547 (Version 1)
Quarter: 2024Q4

REPORT INFORMATION
  Report Type: Spontaneous
  Country: US (occurrence: US)
  Receive Date: 20241113
  Receipt Date: 20241113
  Transmission Date: 20250115
  Serious: No
  Sender: INCYTE
  Company Number: US-EVENT-000328

PATIENT

DRUGS (1)
  1. OPZELURA [Suspect]
     Active Substance: RUXOLITINIB PHOSPHATE
     Dosage: UNK, APPLY TO THE AFFECTED AREA TWICE DAILY AS DIRECTED
     Route: 061
     Dates: start: 20240707

REACTIONS (1)
  - Application site discolouration [Unknown]
